FAERS Safety Report 10156482 (Version 34)
Quarter: 2021Q2

REPORT INFORMATION
  Report Type: Other
  Country: CA (occurrence: CA)
  Receive Date: 20140507
  Receipt Date: 20210604
  Transmission Date: 20210716
  Serious: Yes (Other)
  Sender: FDA-Public Use
  Company Number: CA-ROCHE-1162866

PATIENT
  Age: 65 Year
  Sex: Female
  Weight: 63.5 kg

DRUGS (15)
  1. LEFLUNOMIDE. [Suspect]
     Active Substance: LEFLUNOMIDE
     Indication: PRODUCT USED FOR UNKNOWN INDICATION
     Route: 048
  2. ARAVA [Concomitant]
     Active Substance: LEFLUNOMIDE
     Indication: PRODUCT USED FOR UNKNOWN INDICATION
  3. ACTEMRA [Suspect]
     Active Substance: TOCILIZUMAB
     Route: 042
     Dates: start: 20180427
  4. ACTEMRA [Suspect]
     Active Substance: TOCILIZUMAB
     Route: 042
     Dates: start: 20140725
  5. LEFLUNOMIDE. [Suspect]
     Active Substance: LEFLUNOMIDE
     Route: 065
  6. ACTEMRA [Suspect]
     Active Substance: TOCILIZUMAB
     Indication: RHEUMATOID ARTHRITIS
     Route: 042
     Dates: start: 20121101
  7. ACTEMRA [Suspect]
     Active Substance: TOCILIZUMAB
     Route: 042
     Dates: start: 20160920
  8. PREDNISONE. [Suspect]
     Active Substance: PREDNISONE
     Indication: PRODUCT USED FOR UNKNOWN INDICATION
     Route: 065
  9. IRBESARTAN. [Concomitant]
     Active Substance: IRBESARTAN
     Indication: PRODUCT USED FOR UNKNOWN INDICATION
  10. METOPROLOL. [Concomitant]
     Active Substance: METOPROLOL
     Indication: PRODUCT USED FOR UNKNOWN INDICATION
  11. ACTEMRA [Suspect]
     Active Substance: TOCILIZUMAB
     Route: 042
     Dates: start: 20170326
  12. ACTEMRA [Suspect]
     Active Substance: TOCILIZUMAB
     Route: 042
     Dates: start: 20140822
  13. ACTEMRA [Suspect]
     Active Substance: TOCILIZUMAB
     Route: 042
     Dates: start: 20170303
  14. ACTEMRA [Suspect]
     Active Substance: TOCILIZUMAB
     Route: 042
     Dates: start: 20180913
  15. ARAVA [Concomitant]
     Active Substance: LEFLUNOMIDE

REACTIONS (41)
  - Heart rate increased [Unknown]
  - Blood pressure diastolic abnormal [Unknown]
  - Ventricular extrasystoles [Unknown]
  - Swelling [Not Recovered/Not Resolved]
  - Rash [Not Recovered/Not Resolved]
  - Pain in extremity [Not Recovered/Not Resolved]
  - Pain [Not Recovered/Not Resolved]
  - Nasopharyngitis [Recovered/Resolved]
  - Myalgia [Unknown]
  - Agranulocytosis [Unknown]
  - Weight increased [Not Recovered/Not Resolved]
  - Blood pressure fluctuation [Unknown]
  - Blood pressure diastolic decreased [Unknown]
  - Weight decreased [Not Recovered/Not Resolved]
  - Arthralgia [Not Recovered/Not Resolved]
  - Musculoskeletal stiffness [Not Recovered/Not Resolved]
  - Lipids increased [Unknown]
  - Drug ineffective [Unknown]
  - Contusion [Not Recovered/Not Resolved]
  - Skin ulcer [Not Recovered/Not Resolved]
  - Thrombocytopenia [Unknown]
  - Fatigue [Unknown]
  - Dysphagia [Not Recovered/Not Resolved]
  - Hypotension [Unknown]
  - Pancytopenia [Unknown]
  - Skin cancer [Recovered/Resolved]
  - Hypotension [Unknown]
  - Lower respiratory tract infection [Recovered/Resolved]
  - Heart rate decreased [Unknown]
  - Blood count abnormal [Unknown]
  - Musculoskeletal stiffness [Unknown]
  - Myocardial infarction [Unknown]
  - White blood cell count decreased [Unknown]
  - Palindromic rheumatism [Unknown]
  - Rheumatoid arthritis [Not Recovered/Not Resolved]
  - Infusion related reaction [Unknown]
  - Musculoskeletal discomfort [Not Recovered/Not Resolved]
  - Blood pressure fluctuation [Unknown]
  - Keratoacanthoma [Recovering/Resolving]
  - Blood pressure systolic increased [Unknown]
  - Hypertension [Unknown]

NARRATIVE: CASE EVENT DATE: 20121101
